FAERS Safety Report 4494599-7 (Version None)
Quarter: 2004Q4

REPORT INFORMATION
  Report Type: 
  Country: None (occurrence: None)
  Receive Date: 20041105
  Receipt Date: 20041027
  Transmission Date: 20050328
  Serious: Yes (Hospitalization)
  Sender: FDA-Public Use
  Company Number: AU-MERCK-0411AUS00025

PATIENT
  Age: 18 Month
  Sex: Female

DRUGS (2)
  1. VIOXX [Suspect]
     Indication: GITELMAN'S SYNDROME
     Route: 048
  2. INDOMETHACIN [Suspect]
     Route: 065

REACTIONS (10)
  - DIARRHOEA [None]
  - GASTRITIS [None]
  - HYPERKALAEMIA [None]
  - HYPERNATRAEMIA [None]
  - IRRITABILITY [None]
  - MALAISE [None]
  - METABOLIC ACIDOSIS [None]
  - PRESCRIBED OVERDOSE [None]
  - RENAL FAILURE ACUTE [None]
  - VOMITING [None]
